FAERS Safety Report 4297144-4 (Version None)
Quarter: 2004Q1

REPORT INFORMATION
  Report Type: 
  Country: None (occurrence: None)
  Receive Date: 20040126
  Receipt Date: 20030903
  Transmission Date: 20041129
  Serious: No
  Sender: FDA-Public Use
  Company Number: USA030946176

PATIENT
  Sex: Male
  Weight: 61 kg

DRUGS (2)
  1. STRATTERA [Suspect]
     Dosage: 120 MG/DAY
     Dates: start: 20030701
  2. ..... [Concomitant]

REACTIONS (1)
  - PRESCRIBED OVERDOSE [None]
